FAERS Safety Report 13667951 (Version 3)
Quarter: 2019Q1

REPORT INFORMATION
  Report Type: Spontaneous
  Country: CA (occurrence: CA)
  Receive Date: 20170620
  Receipt Date: 20190221
  Transmission Date: 20190417
  Serious: Yes (Other)
  Sender: FDA-Public Use
  Company Number: CA-PFIZER INC-2016005072

PATIENT
  Age: 75 Year
  Sex: Female

DRUGS (1)
  1. XELJANZ [Suspect]
     Active Substance: TOFACITINIB CITRATE
     Indication: RHEUMATOID ARTHRITIS
     Dosage: 5 MG, 2X/DAY
     Route: 048
     Dates: start: 20151111

REACTIONS (7)
  - Rheumatoid arthritis [Recovered/Resolved]
  - Feeling cold [Not Recovered/Not Resolved]
  - Myalgia [Unknown]
  - Drug effect incomplete [Not Recovered/Not Resolved]
  - Rib fracture [Unknown]
  - Condition aggravated [Recovered/Resolved]
  - Respiratory tract infection [Unknown]

NARRATIVE: CASE EVENT DATE: 2017
